FAERS Safety Report 12958752 (Version 2)
Quarter: 2016Q4

REPORT INFORMATION
  Report Type: Report from Study
  Country: US (occurrence: US)
  Receive Date: 20161121
  Receipt Date: 20161125
  Transmission Date: 20170207
  Serious: Yes (Hospitalization)
  Sender: FDA-Public Use
  Company Number: US-GILEAD-2016-0244161

PATIENT
  Age: 75 Year
  Sex: Female

DRUGS (2)
  1. AMBRISENTAN [Suspect]
     Active Substance: AMBRISENTAN
     Indication: PULMONARY HYPERTENSION
     Dosage: 5 MG, QD
     Route: 065
  2. AMBRISENTAN [Suspect]
     Active Substance: AMBRISENTAN
     Indication: IDIOPATHIC PULMONARY FIBROSIS

REACTIONS (3)
  - Drug dose omission [Unknown]
  - Respiratory tract infection [Unknown]
  - Urinary tract infection [Unknown]

NARRATIVE: CASE EVENT DATE: 20161111
